FAERS Safety Report 4878850-7 (Version None)
Quarter: 2006Q1

REPORT INFORMATION
  Report Type: 
  Country: None (occurrence: None)
  Receive Date: 20060112
  Receipt Date: 20060103
  Transmission Date: 20060701
  Serious: Yes (Other)
  Sender: FDA-Public Use
  Company Number: FI-GLAXOSMITHKLINE-B0405945A

PATIENT
  Age: 48 Year
  Sex: Male

DRUGS (2)
  1. LANVIS [Suspect]
     Dosage: 40MG PER DAY
     Route: 048
     Dates: start: 20030619, end: 20051024
  2. ASACOL [Concomitant]
     Dosage: 3200MG PER DAY
     Route: 048
     Dates: start: 20030101

REACTIONS (6)
  - ALANINE AMINOTRANSFERASE INCREASED [None]
  - ASPARTATE AMINOTRANSFERASE INCREASED [None]
  - BLOOD ALKALINE PHOSPHATASE INCREASED [None]
  - BLOOD THROMBOPLASTIN [None]
  - HEPATIC ENZYME INCREASED [None]
  - PREALBUMIN DECREASED [None]
